FAERS Safety Report 15240940 (Version 1)
Quarter: 2018Q3

REPORT INFORMATION
  Report Type: Spontaneous
  Country: US (occurrence: US)
  Receive Date: 20180711
  Receipt Date: 20180711
  Transmission Date: 20181010
  Serious: No
  Sender: FDA-Public Use
  Company Number: None

PATIENT
  Age: 56 Year
  Sex: Female

DRUGS (3)
  1. ALPRAZOLAM. [Concomitant]
     Active Substance: ALPRAZOLAM
  2. AMLODIPINE [Concomitant]
     Active Substance: AMLODIPINE BESYLATE
  3. GLATIRAMER PFS INJ (12/BOX) [Suspect]
     Active Substance: GLATIRAMER

REACTIONS (2)
  - Manufacturing product shipping issue [None]
  - Product storage error [None]

NARRATIVE: CASE EVENT DATE: 20180711
